FAERS Safety Report 8736877 (Version 2)
Quarter: 2012Q4

REPORT INFORMATION
  Report Type: 
  Country: ZA (occurrence: ZA)
  Receive Date: 20120822
  Receipt Date: 20121217
  Transmission Date: 20130627
  Serious: Yes (Other)
  Sender: FDA-Public Use
  Company Number: ZA-BAYER-2012-079011

PATIENT
  Age: 22 Year
  Sex: Female

DRUGS (4)
  1. MIRENA [Suspect]
     Indication: CONTRACEPTION
     Dosage: 20 ?g/d, CONT
     Route: 015
     Dates: start: 20101203
  2. MIRENA [Suspect]
     Indication: CONTRACEPTION
     Dosage: 20 ?g/d, CONT
     Route: 015
     Dates: start: 20110323
  3. ECOTRIN [Concomitant]
     Dosage: UNK
     Dates: end: 20101202
  4. ASPIRIN [Concomitant]
     Dosage: UNK
     Dates: end: 20101202

REACTIONS (2)
  - Postpartum haemorrhage [None]
  - Device misuse [None]
